FAERS Safety Report 12541285 (Version 2)
Quarter: 2017Q1

REPORT INFORMATION
  Report Type: Spontaneous
  Country: US (occurrence: US)
  Receive Date: 20160708
  Receipt Date: 20170323
  Transmission Date: 20170428
  Serious: Yes (Hospitalization)
  Sender: FDA-Public Use
  Company Number: US-MEDA-2016060114

PATIENT
  Age: 73 Year
  Sex: Male

DRUGS (2)
  1. MESALAMINE. [Suspect]
     Active Substance: MESALAMINE
     Indication: COLITIS
     Dosage: 4.8 GRAMS PER DAY
     Route: 048
  2. MESALAMINE. [Suspect]
     Active Substance: MESALAMINE
     Indication: COLITIS
     Dosage: 4 GRAMS PER DAY
     Route: 054

REACTIONS (3)
  - Transaminases increased [Recovered/Resolved]
  - Renal failure [Recovered/Resolved]
  - Acute generalised exanthematous pustulosis [Recovered/Resolved]
